FAERS Safety Report 26188022 (Version 1)
Quarter: 2025Q4

REPORT INFORMATION
  Report Type: Report from Study
  Country: CO (occurrence: CO)
  Receive Date: 20251222
  Receipt Date: 20251222
  Transmission Date: 20260118
  Serious: Yes (Hospitalization)
  Sender: NOVARTIS
  Company Number: CO-002147023-NVSC2025CO179054

PATIENT
  Sex: Male
  Weight: 71 kg

DRUGS (6)
  1. COSENTYX [Suspect]
     Active Substance: SECUKINUMAB
     Indication: Psoriatic arthropathy
     Dosage: UNK
     Route: 058
  2. COSENTYX [Suspect]
     Active Substance: SECUKINUMAB
     Indication: Psoriasis
     Dosage: UNK (DELAYED DOSE IN JUNE)
     Route: 065
  3. COSENTYX [Suspect]
     Active Substance: SECUKINUMAB
     Dosage: UNK (DELAYED DOSE IN JULY)
     Route: 065
  4. COSENTYX [Suspect]
     Active Substance: SECUKINUMAB
     Dosage: 300 MG, QMO
     Route: 058
     Dates: start: 20251016
  5. COSENTYX [Suspect]
     Active Substance: SECUKINUMAB
     Dosage: 300 MG, QMO
     Route: 058
  6. COSENTYX [Suspect]
     Active Substance: SECUKINUMAB
     Dosage: 300 MG, QMO
     Route: 030

REACTIONS (13)
  - Illness [Not Recovered/Not Resolved]
  - Pain [Unknown]
  - Arthritis [Unknown]
  - Pain in extremity [Unknown]
  - Weight decreased [Unknown]
  - Gait disturbance [Unknown]
  - Drug ineffective [Unknown]
  - Arthropathy [Unknown]
  - Arthralgia [Unknown]
  - Mobility decreased [Unknown]
  - Psoriasis [Unknown]
  - Product availability issue [Not Recovered/Not Resolved]
  - Incorrect route of product administration [Unknown]
